FAERS Safety Report 8017211-9 (Version None)
Quarter: 2012Q1

REPORT INFORMATION
  Report Type: 
  Country: None (occurrence: None)
  Receive Date: 20120102
  Receipt Date: 20111222
  Transmission Date: 20120608
  Serious: Yes (Hospitalization)
  Sender: FDA-Public Use
  Company Number: PHHY2011JP109794

PATIENT
  Age: 90 Year
  Sex: Female

DRUGS (3)
  1. NEORAL [Suspect]
     Indication: APLASIA PURE RED CELL
     Dosage: 50 MG, UNK
     Route: 048
  2. ASPIRIN [Concomitant]
     Dosage: UNK UKN, UNK
     Route: 048
  3. PRIMOBOLAN-DEPOT INJ [Concomitant]
     Route: 048

REACTIONS (1)
  - CEREBRAL INFARCTION [None]
